FAERS Safety Report 8250965-5 (Version None)
Quarter: 2012Q2

REPORT INFORMATION
  Report Type: 
  Country: None (occurrence: None)
  Receive Date: 20120402
  Receipt Date: 20120328
  Transmission Date: 20120825
  Serious: Yes (Other)
  Sender: FDA-Public Use
  Company Number: US-BAYER-201041909NA

PATIENT
  Age: 54 Year
  Sex: Female

DRUGS (7)
  1. MAGNEVIST [Suspect]
     Indication: MASS
  2. MAGNEVIST [Suspect]
     Indication: NUCLEAR MAGNETIC RESONANCE IMAGING
     Dosage: 17 ML, ONCE
     Route: 042
     Dates: start: 20101108, end: 20101108
  3. NORVASC [Concomitant]
  4. POTASSIUM CHLORIDE [Concomitant]
  5. MAGNEVIST [Suspect]
     Indication: ARTHRALGIA
  6. MAGNEVIST [Suspect]
     Indication: JOINT RANGE OF MOTION DECREASED
  7. DYAZIDE [Concomitant]

REACTIONS (1)
  - EYE SWELLING [None]
